FAERS Safety Report 14816265 (Version 1)
Quarter: 2018Q2

REPORT INFORMATION
  Report Type: Spontaneous
  Country: US (occurrence: US)
  Receive Date: 20180417
  Receipt Date: 20180417
  Transmission Date: 20180711
  Serious: Yes (Other)
  Sender: FDA-Public Use
  Company Number: None

PATIENT
  Age: 70 Year
  Sex: Female
  Weight: 81 kg

DRUGS (11)
  1. VITAMIN D [Concomitant]
     Active Substance: CHOLECALCIFEROL
  2. VITAMIN B12 [Concomitant]
     Active Substance: CYANOCOBALAMIN
  3. VITAMIN E [Concomitant]
     Active Substance: .ALPHA.-TOCOPHEROL
  4. POTASSIUM [Concomitant]
     Active Substance: POTASSIUM
  5. VITAMIN C [Concomitant]
     Active Substance: ASCORBIC ACID
  6. SYNTHROID [Concomitant]
     Active Substance: LEVOTHYROXINE SODIUM
  7. FISH OIL [Concomitant]
     Active Substance: FISH OIL
  8. LOW DOSE ASPIRIN [Concomitant]
     Active Substance: ASPIRIN
  9. PREMPRO [Concomitant]
     Active Substance: ESTROGENS, CONJUGATED\MEDROXYPROGESTERONE ACETATE
  10. CALCIUM [Concomitant]
     Active Substance: CALCIUM
  11. CREST GUM DETOXIFY GENTLE WHITENING [Suspect]
     Active Substance: STANNOUS FLUORIDE
     Indication: DENTAL CARIES
     Dosage: TEETH BRUSHING?
     Dates: start: 20180312, end: 20180313

REACTIONS (2)
  - Oral discomfort [None]
  - Oral mucosal blistering [None]

NARRATIVE: CASE EVENT DATE: 20180312
